FAERS Safety Report 9354092 (Version 1)
Quarter: 2013Q2

REPORT INFORMATION
  Report Type: Spontaneous
  Country: US (occurrence: US)
  Receive Date: 20130618
  Receipt Date: 20130618
  Transmission Date: 20140414
  Serious: Yes (Hospitalization)
  Sender: FDA-Public Use
  Company Number: US-GLAXOSMITHKLINE-A0797799A

PATIENT
  Age: 69 Year
  Sex: Male
  Weight: 89.5 kg

DRUGS (2)
  1. AVANDIA [Suspect]
     Indication: DIABETES MELLITUS
     Dosage: 4MG TWICE PER DAY
     Route: 048
     Dates: start: 200504, end: 20090214
  2. AVANDAMET [Suspect]
     Indication: DIABETES MELLITUS
     Route: 048

REACTIONS (5)
  - Cardiac failure congestive [Unknown]
  - Anaemia [Unknown]
  - Mitral valve incompetence [Unknown]
  - Ill-defined disorder [Unknown]
  - Atrial fibrillation [Unknown]
